FAERS Safety Report 22304601 (Version 1)
Quarter: 2023Q2

REPORT INFORMATION
  Report Type: Report from Study
  Country: BR (occurrence: BR)
  Receive Date: 20230510
  Receipt Date: 20230510
  Transmission Date: 20230722
  Serious: Yes (Death, Hospitalization)
  Sender: FDA-Public Use
  Company Number: BR-PFIZER INC-PV202300081478

PATIENT

DRUGS (4)
  1. PACLITAXEL [Suspect]
     Active Substance: PACLITAXEL
     Indication: Head and neck cancer
     Dosage: A 1-H INFUSION ON DAYS 1, 8, AND 15
  2. LEUCOVORIN CALCIUM [Suspect]
     Active Substance: LEUCOVORIN CALCIUM
     Indication: Head and neck cancer
     Dosage: 1X/DAY, AS A BOLUS FOR FOUR CONSECUTIVE DAYS
  3. CISPLATIN [Suspect]
     Active Substance: CISPLATIN
     Indication: Head and neck cancer
     Dosage: 1X/DAY, A 90-MIN INFUSION ON THREE CONSECUTIVE DAYS ON DAYS 1, 2, AND 3
  4. FLUOROURACIL SODIUM [Suspect]
     Active Substance: FLUOROURACIL SODIUM
     Indication: Head and neck cancer
     Dosage: 1X/DAY, AS A BOLUS FOR FOUR CONSECUTIVE DAYS
     Route: 040

REACTIONS (1)
  - Febrile neutropenia [Fatal]
